FAERS Safety Report 7558413-5 (Version None)
Quarter: 2011Q2

REPORT INFORMATION
  Report Type: 
  Country: None (occurrence: None)
  Receive Date: 20110620
  Receipt Date: 20110613
  Transmission Date: 20111010
  Serious: Yes (Hospitalization, Other)
  Sender: FDA-Public Use
  Company Number: PHHO2011US10169

PATIENT
  Sex: Male

DRUGS (10)
  1. RAD001 [Suspect]
     Indication: COLON CANCER
     Dosage: 5 M, QD
     Route: 048
     Dates: start: 20110512, end: 20110527
  2. COMPAZINE [Concomitant]
  3. DIPHENHYDRAMINE HCL [Concomitant]
  4. IRINOTECAN HYDROCHLORIDE [Suspect]
     Indication: COLON CANCER
     Dosage: 304 MG
     Route: 042
     Dates: start: 20110512, end: 20110529
  5. PRILOSEC [Concomitant]
  6. COUMADIN [Concomitant]
  7. NYSTATIN [Concomitant]
  8. ERBITUX [Suspect]
     Indication: COLON CANCER
     Dosage: 608 MG, 1 WEEK
     Route: 042
     Dates: start: 20110512, end: 20110526
  9. WELLBUTRIN [Concomitant]
  10. CHOLESTYRAMINE RESIN [Concomitant]

REACTIONS (3)
  - FEBRILE NEUTROPENIA [None]
  - RENAL FAILURE ACUTE [None]
  - ANGIOEDEMA [None]
